FAERS Safety Report 15750589 (Version 2)
Quarter: 2019Q2

REPORT INFORMATION
  Report Type: Spontaneous
  Country: GB (occurrence: GB)
  Receive Date: 20181221
  Receipt Date: 20190423
  Transmission Date: 20190711
  Serious: Yes (Death, Life-Threatening)
  Sender: FDA-Public Use
  Company Number: GB-PFIZER INC-2018519861

PATIENT
  Age: 67 Year
  Sex: Male
  Weight: 69.85 kg

DRUGS (8)
  1. PHENYTOIN SODIUM. [Suspect]
     Active Substance: PHENYTOIN SODIUM
     Indication: GENERALISED TONIC-CLONIC SEIZURE
     Dosage: UNK
     Route: 051
     Dates: start: 20160427, end: 20160508
  2. KEPPRA [Suspect]
     Active Substance: LEVETIRACETAM
     Indication: GENERALISED TONIC-CLONIC SEIZURE
     Dosage: 1500 MG, DAILY
     Route: 051
     Dates: start: 20160427, end: 20160506
  3. ENOXAPARIN [Suspect]
     Active Substance: ENOXAPARIN
     Dosage: UNK
     Route: 051
     Dates: start: 20160427, end: 20160508
  4. KEPPRA [Suspect]
     Active Substance: LEVETIRACETAM
     Dosage: 500 MG, UNK
     Dates: start: 2015
  5. TEICOPLANIN [Suspect]
     Active Substance: TEICOPLANIN
     Indication: INFECTION
     Dosage: UNK
     Route: 051
     Dates: start: 20160427
  6. PARACETAMOL [Suspect]
     Active Substance: ACETAMINOPHEN
     Indication: GENERALISED TONIC-CLONIC SEIZURE
     Dosage: 2000 MG, DAILY
     Route: 051
     Dates: start: 20160427, end: 20160508
  7. SODIUM CHLORIDE. [Suspect]
     Active Substance: SODIUM CHLORIDE
     Route: 042
  8. CIPROFLOXACIN. [Suspect]
     Active Substance: CIPROFLOXACIN
     Indication: INFECTION
     Dosage: 1200 MG, DAILY
     Route: 051
     Dates: start: 20160427

REACTIONS (10)
  - Crying [Unknown]
  - Dyspnoea [Not Recovered/Not Resolved]
  - Depression [Unknown]
  - Abdominal distension [Not Recovered/Not Resolved]
  - Abdominal pain [Unknown]
  - Dysphagia [Not Recovered/Not Resolved]
  - Anxiety [Unknown]
  - Gastrointestinal haemorrhage [Fatal]
  - Melaena [Unknown]
  - Tongue coated [Recovered/Resolved]

NARRATIVE: CASE EVENT DATE: 20160429
